FAERS Safety Report 4946935-2 (Version None)
Quarter: 2006Q1

REPORT INFORMATION
  Report Type: 
  Country: None (occurrence: None)
  Receive Date: 20060313
  Receipt Date: 20060227
  Transmission Date: 20060701
  Serious: Yes (Life-Threatening, Hospitalization)
  Sender: FDA-Public Use
  Company Number: 2003172706US

PATIENT
  Age: 71 Year
  Sex: Male
  Weight: 80.2867 kg

DRUGS (4)
  1. SUTENT [Suspect]
     Indication: NEUROENDOCRINE TUMOUR
     Dosage: 50 MG (50 MG, 1 IN 1 D), ORAL
     Route: 048
     Dates: start: 20030623, end: 20030811
  2. ACETAMINOPHEN [Suspect]
     Indication: PAIN
     Dosage: 1G, PRN (1 GRAM, AS NECESSARY), ORAL
     Route: 048
     Dates: start: 20030707
  3. SANDOSTATIN [Concomitant]
  4. COMPAZINE [Concomitant]

REACTIONS (3)
  - GASTROINTESTINAL HAEMORRHAGE [None]
  - HYPOTENSION [None]
  - MELAENA [None]
